FAERS Safety Report 8134737-8 (Version None)
Quarter: 2012Q1

REPORT INFORMATION
  Report Type: 
  Country: None (occurrence: None)
  Receive Date: 20120103
  Receipt Date: 20111118
  Transmission Date: 20120608
  Serious: No
  Sender: FDA-Public Use
  Company Number: AE-2011-003425

PATIENT
  Age: 43 Year
  Sex: Male
  Weight: 88.4514 kg

DRUGS (8)
  1. RIBAVIRIN [Concomitant]
  2. ZYPREXA [Concomitant]
  3. INCIVEK [Suspect]
     Dosage: 2250 MG (750 MG, 3 IN 1 D), ORAL
     Route: 048
     Dates: start: 20111110
  4. ELAVIL [Concomitant]
  5. MELLARIL [Concomitant]
  6. JANUVIA [Concomitant]
  7. KLONOPIN [Concomitant]
  8. PEGINTERFERON (PEGINTERFERON ALFA-2A) [Concomitant]

REACTIONS (5)
  - INSOMNIA [None]
  - CHILLS [None]
  - HAEMORRHOIDAL HAEMORRHAGE [None]
  - DIARRHOEA [None]
  - INFLUENZA LIKE ILLNESS [None]
